APPROVED DRUG PRODUCT: VALGANCICLOVIR HYDROCHLORIDE
Active Ingredient: VALGANCICLOVIR HYDROCHLORIDE
Strength: EQ 450MG BASE
Dosage Form/Route: TABLET;ORAL
Application: A205151 | Product #001
Applicant: PHARMOBEDIENT CONSULTING LLC
Approved: Mar 3, 2021 | RLD: No | RS: No | Type: DISCN